FAERS Safety Report 24559142 (Version 1)
Quarter: 2024Q4

REPORT INFORMATION
  Report Type: Spontaneous
  Country: JP (occurrence: JP)
  Receive Date: 20241029
  Receipt Date: 20241029
  Transmission Date: 20250114
  Serious: Yes (Other)
  Sender: Phathom Pharmaceuticals
  Company Number: JP-PHATHOM PHARMACEUTICALS INC.-2024PHT01153

PATIENT
  Age: 74 Year
  Sex: Male

DRUGS (1)
  1. VONOPRAZAN FUMARATE [Suspect]
     Active Substance: VONOPRAZAN FUMARATE
     Indication: Product used for unknown indication
     Route: 048

REACTIONS (3)
  - Blood magnesium decreased [Recovering/Resolving]
  - Blood creatine phosphokinase increased [Recovering/Resolving]
  - Tonic convulsion [Recovered/Resolved]
